FAERS Safety Report 21774363 (Version 1)
Quarter: 2022Q4

REPORT INFORMATION
  Report Type: Spontaneous
  Country: IT (occurrence: IT)
  Receive Date: 20221224
  Receipt Date: 20221224
  Transmission Date: 20230113
  Serious: Yes (Other)
  Sender: FDA-Public Use
  Company Number: None

PATIENT
  Age: 67 Year
  Sex: Male

DRUGS (2)
  1. GEMCITABINE [Suspect]
     Active Substance: GEMCITABINE
     Indication: Bladder cancer
     Dosage: UNIT DOSE : 1352 MG, DURATION : 213 DAYS
     Route: 065
     Dates: start: 20220329, end: 20221028
  2. CARBOPLATIN [Suspect]
     Active Substance: CARBOPLATIN
     Indication: Bladder cancer
     Dosage: UNIT DOSE : 214.92 MG, DURATION : 213 DAYS
     Route: 065
     Dates: start: 20220329, end: 20221028

REACTIONS (2)
  - Neutropenia [Recovering/Resolving]
  - Anaemia [Recovering/Resolving]

NARRATIVE: CASE EVENT DATE: 20221108
